FAERS Safety Report 4654435-2 (Version None)
Quarter: 2005Q2

REPORT INFORMATION
  Report Type: 
  Country: None (occurrence: None)
  Receive Date: 20050505
  Receipt Date: 20050505
  Transmission Date: 20051028
  Serious: Yes (Life-Threatening)
  Sender: FDA-Public Use
  Company Number: None

PATIENT
  Age: 56 Year
  Sex: Female
  Weight: 92.5338 kg

DRUGS (3)
  1. QUINAPRIL [Suspect]
     Indication: HYPERTENSION
     Dosage: PO BID  40 MG
     Route: 048
     Dates: start: 20050405, end: 20050421
  2. NORVASC [Concomitant]
  3. ATIVAN [Concomitant]

REACTIONS (2)
  - CHEST PAIN [None]
  - PHARMACEUTICAL PRODUCT COMPLAINT [None]
